FAERS Safety Report 20537364 (Version 1)
Quarter: 2022Q1

REPORT INFORMATION
  Report Type: Spontaneous
  Country: US (occurrence: None)
  Receive Date: 20220301
  Receipt Date: 20220301
  Transmission Date: 20220423
  Serious: Yes (Disabling, Other)
  Sender: FDA-Public Use
  Company Number: None

PATIENT
  Age: 40 Year
  Sex: Female

DRUGS (1)
  1. DIMETHYL FUMARATE [Suspect]
     Active Substance: DIMETHYL FUMARATE
     Indication: Multiple sclerosis
     Dosage: FREQUENCY : TWICE A DAY;?
     Route: 048
     Dates: start: 2018

REACTIONS (7)
  - Multiple sclerosis relapse [None]
  - Product substitution issue [None]
  - Muscle spasticity [None]
  - Hypoaesthesia [None]
  - Limb discomfort [None]
  - Temperature intolerance [None]
  - Gait disturbance [None]

NARRATIVE: CASE EVENT DATE: 20210501
